FAERS Safety Report 12180234 (Version 1)
Quarter: 2016Q1

REPORT INFORMATION
  Report Type: Spontaneous
  Country: US (occurrence: US)
  Receive Date: 20160315
  Receipt Date: 20160315
  Transmission Date: 20160526
  Serious: No
  Sender: FDA-Public Use
  Company Number: JP-WARNER CHILCOTT 2015-000169

PATIENT
  Age: 95 Year
  Sex: Female

DRUGS (3)
  1. ESTRACE [Suspect]
     Active Substance: ESTRADIOL
     Indication: BLADDER DISORDER
     Route: 067
     Dates: end: 20150130
  2. OTHER OPHTHALMOLOGICALS [Concomitant]
  3. TYLENOL [Concomitant]
     Active Substance: ACETAMINOPHEN

REACTIONS (2)
  - Abdominal pain lower [None]
  - Abdominal pain [None]
